FAERS Safety Report 8342720-2 (Version None)
Quarter: 2012Q2

REPORT INFORMATION
  Report Type: 
  Country: None (occurrence: None)
  Receive Date: 20120503
  Receipt Date: 20110419
  Transmission Date: 20120825
  Serious: Yes (Death, Hospitalization, Other)
  Sender: FDA-Public Use
  Company Number: IN-022525

PATIENT
  Age: 58 Year
  Sex: Male

DRUGS (3)
  1. (CHLORAMBUCIL) [Suspect]
     Indication: CHRONIC LYMPHOCYTIC LEUKAEMIA
     Dosage: 10 MG/M2 QD, ORAL
     Route: 048
     Dates: start: 20110324
  2. CEFUROXIME [Concomitant]
  3. (OFATUMUMAB) [Suspect]
     Indication: CHRONIC LYMPHOCYTIC LEUKAEMIA
     Dosage: SEE IMAGE
     Route: 042

REACTIONS (6)
  - ASTHENIA [None]
  - ANAEMIA [None]
  - PYREXIA [None]
  - PLATELET COUNT DECREASED [None]
  - PALLOR [None]
  - HAEMATURIA [None]
